FAERS Safety Report 19742514 (Version 2)
Quarter: 2021Q3

REPORT INFORMATION
  Report Type: Spontaneous
  Country: US (occurrence: US)
  Receive Date: 20210824
  Receipt Date: 20210926
  Transmission Date: 20211014
  Serious: No
  Sender: FDA-Public Use
  Company Number: US-JNJFOC-20210813579

PATIENT
  Age: 52 Year
  Sex: Male
  Weight: 70.37 kg

DRUGS (2)
  1. TREMFYA [Suspect]
     Active Substance: GUSELKUMAB
     Indication: PSORIASIS
     Dosage: FREQUENCY; OTHER
     Route: 058
     Dates: start: 202107
  2. TREMFYA [Suspect]
     Active Substance: GUSELKUMAB
     Indication: PSORIASIS
     Dosage: 1 UNITS INVOLVED?INJECTED WEEK 0 DOSE OF TREMFYA ONE?PRESS 100MG PER ML
     Route: 058
     Dates: start: 20210802

REACTIONS (4)
  - Accidental exposure to product [Unknown]
  - Injection site discolouration [Not Recovered/Not Resolved]
  - Product dose omission issue [Unknown]
  - Device malfunction [Unknown]

NARRATIVE: CASE EVENT DATE: 20210802
